FAERS Safety Report 6566084-X (Version None)
Quarter: 2010Q1

REPORT INFORMATION
  Report Type: 
  Country: None (occurrence: None)
  Receive Date: 20100202
  Receipt Date: 20100127
  Transmission Date: 20100710
  Serious: Yes (Other)
  Sender: FDA-Public Use
  Company Number: US-RB-001847-10

PATIENT
  Age: 75 Year
  Sex: Female

DRUGS (1)
  1. MUCINEX DM [Suspect]
     Dosage: TOOK 1 TABLET EVERY 12 HOURS
     Route: 048
     Dates: start: 20100124

REACTIONS (1)
  - BLOOD PRESSURE INCREASED [None]
